FAERS Safety Report 13714092 (Version 1)
Quarter: 2017Q3

REPORT INFORMATION
  Report Type: Spontaneous
  Country: US (occurrence: US)
  Receive Date: 20170704
  Receipt Date: 20170704
  Transmission Date: 20171127
  Serious: Yes (Other)
  Sender: FDA-Public Use
  Company Number: US-ASTRAZENECA-2017SE66299

PATIENT
  Age: 76 Year
  Sex: Female
  Weight: 58 kg

DRUGS (15)
  1. FASLODEX [Suspect]
     Active Substance: FULVESTRANT
     Dosage: 250.0MG AS REQUIRED
     Route: 030
  2. IBRANCE [Suspect]
     Active Substance: PALBOCICLIB
     Indication: BREAST CANCER FEMALE
     Route: 048
  3. BIOTIN [Concomitant]
     Active Substance: BIOTIN
     Route: 048
  4. MAGNESIUM [Concomitant]
     Active Substance: MAGNESIUM
     Route: 048
  5. ZOMETA [Concomitant]
     Active Substance: ZOLEDRONIC ACID
     Dosage: 4.0MG AS REQUIRED
     Route: 042
  6. AROMASIN [Suspect]
     Active Substance: EXEMESTANE
     Route: 048
     Dates: start: 20150511
  7. CALCIUM [Concomitant]
     Active Substance: CALCIUM
     Dosage: 1200.0MG UNKNOWN
  8. POTASSIUM [Concomitant]
     Active Substance: POTASSIUM
     Route: 048
  9. METOPROLOL TARTRATE. [Concomitant]
     Active Substance: METOPROLOL TARTRATE
     Route: 048
  10. ACIDOPHILLUS [Concomitant]
     Route: 048
  11. ASPIRIN. [Concomitant]
     Active Substance: ASPIRIN
     Route: 048
  12. ANASTROZOLE. [Suspect]
     Active Substance: ANASTROZOLE
     Route: 048
     Dates: start: 201408
  13. VITAMIN D3 [Concomitant]
     Active Substance: CHOLECALCIFEROL
     Dosage: 1000 UNIT, DAILY
     Route: 048
  14. LISINOPRIL. [Suspect]
     Active Substance: LISINOPRIL
     Route: 048
  15. PANTOPRAZOLE SODIUM. [Concomitant]
     Active Substance: PANTOPRAZOLE SODIUM
     Route: 048

REACTIONS (18)
  - Malignant neoplasm progression [Unknown]
  - Breast cancer recurrent [Unknown]
  - Pelvic mass [Unknown]
  - Rash [Unknown]
  - Metastases to spine [Unknown]
  - Pyrexia [Unknown]
  - Abdominal pain [Unknown]
  - Bone cancer metastatic [Unknown]
  - Vitamin D deficiency [Unknown]
  - Osteoporosis [Unknown]
  - Pulmonary mass [Unknown]
  - Osteopenia [Unknown]
  - Invasive ductal breast carcinoma [Unknown]
  - Fatigue [Unknown]
  - Muscular weakness [Unknown]
  - Osteoarthritis [Unknown]
  - Dizziness postural [Unknown]
  - Neuropathy peripheral [Unknown]
